FAERS Safety Report 9919537 (Version 2)
Quarter: 2014Q1

REPORT INFORMATION
  Report Type: Spontaneous
  Country: JP (occurrence: JP)
  Receive Date: 20140224
  Receipt Date: 20140224
  Transmission Date: 20141002
  Serious: Yes (Hospitalization)
  Sender: FDA-Public Use
  Company Number: JP-ACTELION-A-CH2013-77421

PATIENT
  Age: 68 Year
  Sex: Female
  Weight: 59.9 kg

DRUGS (9)
  1. TRACLEER [Suspect]
     Indication: PULMONARY ARTERIAL HYPERTENSION
     Dosage: 62.5 MG, BID
     Route: 048
     Dates: start: 20121211
  2. BERAPROST SODIUM [Concomitant]
  3. WARFARIN POTASSIUM [Concomitant]
  4. FUROSEMIDE [Concomitant]
  5. PITAVASTATIN CALCIUM [Concomitant]
  6. FEBUXOSTAT [Concomitant]
  7. SPIRONOLACTONE [Concomitant]
  8. CARVEDILOL [Concomitant]
  9. OXYGEN [Concomitant]

REACTIONS (5)
  - Cardiac failure acute [Recovering/Resolving]
  - Hepatic enzyme increased [Recovering/Resolving]
  - Aspartate aminotransferase increased [Recovering/Resolving]
  - Alanine aminotransferase increased [Recovering/Resolving]
  - Blood alkaline phosphatase increased [Recovering/Resolving]
